FAERS Safety Report 9912469 (Version 1)
Quarter: 2014Q1

REPORT INFORMATION
  Report Type: Spontaneous
  Country: US (occurrence: US)
  Receive Date: 20140220
  Receipt Date: 20140220
  Transmission Date: 20141002
  Serious: Yes (Other)
  Sender: FDA-Public Use
  Company Number: US-BRISTOL-MYERS SQUIBB COMPANY-20177986

PATIENT
  Age: 80 Year
  Sex: Female
  Weight: 38.55 kg

DRUGS (13)
  1. ELIQUIS [Suspect]
     Dates: start: 20140131
  2. LOSARTAN [Concomitant]
  3. OMEPRAZOLE [Concomitant]
  4. CLONAZEPAM [Concomitant]
  5. TRAMADOL [Concomitant]
  6. ROPINIROLE [Concomitant]
  7. DIGOXIN [Concomitant]
  8. LEVOTHYROXINE [Concomitant]
  9. ISOSORBIDE [Concomitant]
  10. CITALOPRAM [Concomitant]
  11. PROPRANOLOL [Concomitant]
  12. ZOLPIDEM [Concomitant]
  13. VITAMINS [Concomitant]

REACTIONS (5)
  - Vascular dementia [Unknown]
  - Fall [Unknown]
  - Pollakiuria [Unknown]
  - Joint swelling [Unknown]
  - Arthralgia [Unknown]
